FAERS Safety Report 15792711 (Version 2)
Quarter: 2019Q1

REPORT INFORMATION
  Report Type: Report from Study
  Country: CA (occurrence: CA)
  Receive Date: 20190107
  Receipt Date: 20190328
  Transmission Date: 20190417
  Serious: Yes (Other)
  Sender: FDA-Public Use
  Company Number: CA-TOLMAR, INC.-2019CA000053

PATIENT

DRUGS (1)
  1. ELIGARD [Suspect]
     Active Substance: LEUPROLIDE ACETATE
     Indication: PROSTATE CANCER
     Dosage: 30 MG, EVERY 4 MONTHS
     Route: 058
     Dates: start: 20180919

REACTIONS (4)
  - Emotional disorder [Recovering/Resolving]
  - Increased appetite [Recovering/Resolving]
  - Depressed mood [Unknown]
  - Amnesia [Unknown]

NARRATIVE: CASE EVENT DATE: 201809
